FAERS Safety Report 7974495-0 (Version None)
Quarter: 2011Q4

REPORT INFORMATION
  Report Type: 
  Country: None (occurrence: None)
  Receive Date: 20111213
  Receipt Date: 20111205
  Transmission Date: 20120403
  Serious: Yes (Other)
  Sender: FDA-Public Use
  Company Number: CHPA2011US017444

PATIENT
  Sex: Female

DRUGS (5)
  1. EXCEDRIN (MIGRAINE) [Suspect]
     Indication: HEADACHE
     Dosage: UNK, UNK
     Route: 048
  2. EXCEDRIN TENSION HEADACHE [Suspect]
     Indication: HEADACHE
     Dosage: UNK, UNK
     Route: 048
  3. IMITREX ^CERENEX^ [Concomitant]
     Indication: MIGRAINE
  4. EXCEDRIN (MIGRAINE) [Suspect]
     Indication: HEADACHE
     Dosage: UNK, UNK
     Route: 048
  5. MAGNESIUM SULFATE [Concomitant]

REACTIONS (5)
  - DRUG DEPENDENCE [None]
  - INCORRECT DRUG ADMINISTRATION DURATION [None]
  - HEADACHE [None]
  - VOMITING [None]
  - WITHDRAWAL SYNDROME [None]
